FAERS Safety Report 6609589-5 (Version None)
Quarter: 2010Q1

REPORT INFORMATION
  Report Type: 
  Country: None (occurrence: None)
  Receive Date: 20100212
  Receipt Date: 20091113
  Transmission Date: 20100710
  Serious: No
  Sender: FDA-Public Use
  Company Number: 1000010129

PATIENT
  Age: 34 Year
  Sex: Female

DRUGS (7)
  1. SAVELLA [Suspect]
     Indication: BACK PAIN
     Dosage: 12.5 MG (12.5 MG, 1 IN 1 D), ORAL; SEE IMAGE
     Route: 048
     Dates: start: 20091102, end: 20091102
  2. SAVELLA [Suspect]
     Indication: BACK PAIN
     Dosage: 12.5 MG (12.5 MG, 1 IN 1 D), ORAL; SEE IMAGE
     Route: 048
     Dates: start: 20091103, end: 20091104
  3. SAVELLA [Suspect]
     Indication: BACK PAIN
     Dosage: 12.5 MG (12.5 MG, 1 IN 1 D), ORAL; SEE IMAGE
     Route: 048
     Dates: start: 20091105, end: 20091108
  4. SAVELLA [Suspect]
     Indication: BACK PAIN
     Dosage: 12.5 MG (12.5 MG, 1 IN 1 D), ORAL; SEE IMAGE
     Route: 048
     Dates: start: 20091109
  5. PERCOCET [Concomitant]
  6. AMBIEN [Concomitant]
  7. MORPHINE [Concomitant]

REACTIONS (1)
  - INCREASED APPETITE [None]
